FAERS Safety Report 14824719 (Version 1)
Quarter: 2018Q2

REPORT INFORMATION
  Report Type: Spontaneous
  Country: US (occurrence: US)
  Receive Date: 20180429
  Receipt Date: 20180429
  Transmission Date: 20180711
  Serious: No
  Sender: FDA-Public Use
  Company Number: US-JNJFOC-20180418413

PATIENT
  Sex: Male

DRUGS (1)
  1. ZYTIGA [Suspect]
     Active Substance: ABIRATERONE ACETATE
     Indication: PRODUCT USED FOR UNKNOWN INDICATION
     Dosage: ALTERNATE DAILY BETWEEN 3 TABLETS AND 4 TABLETS
     Route: 048

REACTIONS (3)
  - Somnolence [Unknown]
  - Hot flush [Unknown]
  - Incorrect dose administered [Unknown]
